FAERS Safety Report 8800265 (Version 2)
Quarter: 2012Q4

REPORT INFORMATION
  Report Type: 
  Country: US (occurrence: US)
  Receive Date: 20120921
  Receipt Date: 20121016
  Transmission Date: 20130627
  Serious: Yes (Hospitalization)
  Sender: FDA-Public Use
  Company Number: US-CELGENEUS-163-21880-12091850

PATIENT
  Sex: Female
  Weight: 50.85 kg

DRUGS (5)
  1. REVLIMID [Suspect]
     Indication: MULTIPLE MYELOMA
     Dosage: 25 Milligram
     Route: 048
     Dates: start: 200906, end: 2009
  2. REVLIMID [Suspect]
     Dosage: 15 Milligram
     Route: 048
     Dates: start: 200911, end: 201010
  3. REVLIMID [Suspect]
     Dosage: 15 Milligram
     Route: 048
     Dates: start: 201107
  4. REVLIMID [Suspect]
     Dosage: 3.3333 Milligram
     Route: 048
     Dates: start: 201207
  5. GLIPIZIDE [Concomitant]
     Indication: DIABETES
     Dosage: 10 Milligram
     Route: 048

REACTIONS (1)
  - Blood glucose abnormal [Recovering/Resolving]
